FAERS Safety Report 22900763 (Version 3)
Quarter: 2024Q1

REPORT INFORMATION
  Report Type: Report from Study
  Country: PE (occurrence: PE)
  Receive Date: 20230904
  Receipt Date: 20240221
  Transmission Date: 20240410
  Serious: Yes (Other)
  Sender: FDA-Public Use
  Company Number: PE-002147023-NVSC2023PE189684

PATIENT
  Age: 41 Year
  Sex: Female
  Weight: 80 kg

DRUGS (7)
  1. COSENTYX [Suspect]
     Active Substance: SECUKINUMAB
     Indication: Axial spondyloarthritis
     Dosage: 150 MG, Q2MO (ONCE EVERY EIGHT WEEKS)
     Route: 058
     Dates: start: 20180301
  2. COSENTYX [Suspect]
     Active Substance: SECUKINUMAB
     Indication: Psoriatic arthropathy
     Dosage: 150 MG, QMO
     Route: 058
     Dates: start: 201804, end: 201912
  3. COSENTYX [Suspect]
     Active Substance: SECUKINUMAB
     Dosage: 150 MG, QMO
     Route: 058
     Dates: start: 202005
  4. COSENTYX [Suspect]
     Active Substance: SECUKINUMAB
     Dosage: 150 MG, EVERY 7 WEEKS
     Route: 058
  5. COSENTYX [Suspect]
     Active Substance: SECUKINUMAB
     Dosage: 150 MG, Q2MO (EVERY 8 WEEKS)
     Route: 058
     Dates: start: 202308
  6. FOLIC ACID [Concomitant]
     Active Substance: FOLIC ACID
     Indication: Product used for unknown indication
     Dosage: 2 DOSAGE FORM, QD
     Route: 065
  7. METHOTREXATE [Concomitant]
     Active Substance: METHOTREXATE
     Indication: Product used for unknown indication
     Dosage: 3 DOSAGE FORM, QW
     Route: 048

REACTIONS (2)
  - Ankylosing spondylitis [Unknown]
  - Off label use [Unknown]

NARRATIVE: CASE EVENT DATE: 20230801
